FAERS Safety Report 6306707-3 (Version None)
Quarter: 2009Q3

REPORT INFORMATION
  Report Type: 
  Country: None (occurrence: None)
  Receive Date: 20090812
  Receipt Date: 20090509
  Transmission Date: 20100115
  Serious: No
  Sender: FDA-Public Use
  Company Number: A0784402A

PATIENT
  Age: 35 Year
  Sex: Female

DRUGS (1)
  1. VERAMYST [Suspect]
     Indication: NASAL DISORDER
     Route: 045
     Dates: start: 20090101

REACTIONS (2)
  - BONE PAIN [None]
  - MYALGIA [None]
